FAERS Safety Report 10659754 (Version 8)
Quarter: 2019Q4

REPORT INFORMATION
  Report Type: Spontaneous
  Country: US (occurrence: US)
  Receive Date: 20141217
  Receipt Date: 20191112
  Transmission Date: 20200122
  Serious: Yes (Disabling, Other)
  Sender: FDA-Public Use
  Company Number: US-009507513-1204USA04471

PATIENT
  Sex: Male
  Weight: 88.44 kg

DRUGS (2)
  1. PROPECIA [Suspect]
     Active Substance: FINASTERIDE
     Indication: ALOPECIA
     Dosage: 1 MG, QD
     Route: 048
     Dates: start: 2006, end: 2011
  2. FINASTERIDE. [Suspect]
     Active Substance: FINASTERIDE
     Indication: ALOPECIA
     Dosage: 1.25 MILLIGRAM, UNK
     Dates: start: 200903, end: 201103

REACTIONS (18)
  - Ejaculation failure [Not Recovered/Not Resolved]
  - Ear disorder [Unknown]
  - Anxiety [Recovered/Resolved]
  - Hypogonadism male [Unknown]
  - Ejaculation disorder [Not Recovered/Not Resolved]
  - Erectile dysfunction [Not Recovered/Not Resolved]
  - Infection [Unknown]
  - Semen analysis abnormal [Not Recovered/Not Resolved]
  - Male orgasmic disorder [Not Recovered/Not Resolved]
  - Libido decreased [Not Recovered/Not Resolved]
  - Hyperlipidaemia [Unknown]
  - Genital hypoaesthesia [Not Recovered/Not Resolved]
  - Weight increased [Unknown]
  - Post 5-alpha-reductase inhibitor syndrome [Not Recovered/Not Resolved]
  - Semen volume decreased [Not Recovered/Not Resolved]
  - Cognitive disorder [Not Recovered/Not Resolved]
  - Sexual dysfunction [Not Recovered/Not Resolved]
  - Depression [Recovered/Resolved]

NARRATIVE: CASE EVENT DATE: 200702
